FAERS Safety Report 7952753-3 (Version None)
Quarter: 2011Q4

REPORT INFORMATION
  Report Type: 
  Country: None (occurrence: None)
  Receive Date: 20111201
  Receipt Date: 20111126
  Transmission Date: 20120403
  Serious: Yes (Other)
  Sender: FDA-Public Use
  Company Number: US-BAYER-2011-052511

PATIENT
  Age: 19 Year
  Sex: Female
  Weight: 68.027 kg

DRUGS (6)
  1. ZYRTEC [Concomitant]
     Indication: MULTIPLE ALLERGIES
  2. IBUPROFEN [Concomitant]
     Indication: DYSMENORRHOEA
     Dosage: UNK UNK, PRN
  3. M.V.I. [Concomitant]
  4. ALBUTEROL [Concomitant]
     Indication: ASTHMA EXERCISE INDUCED
     Dosage: UNK UNK, PRN
  5. ACETAMINOPHEN [Concomitant]
  6. YAZ [Suspect]
     Dosage: UNK
     Dates: start: 20060101, end: 20090101

REACTIONS (3)
  - PAIN [None]
  - CHOLECYSTITIS CHRONIC [None]
  - GALLBLADDER DISORDER [None]
